FAERS Safety Report 9288033 (Version 3)
Quarter: 2013Q2

REPORT INFORMATION
  Report Type: Spontaneous
  Country: US (occurrence: None)
  Receive Date: 20120925
  Receipt Date: 20130415
  Transmission Date: 20140414
  Serious: Yes (Hospitalization)
  Sender: FDA-Public Use
  Company Number: 2012033362

PATIENT
  Sex: Male

DRUGS (1)
  1. HIZENTRA [Suspect]
     Dosage: 4G, 2 SITES OVER 52 MINUTES)
     Dates: start: 20120831, end: 20120831

REACTIONS (10)
  - Pyrexia [None]
  - Hyperhidrosis [None]
  - Headache [None]
  - Fatigue [None]
  - Feeling abnormal [None]
  - Vision blurred [None]
  - Confusional state [None]
  - Gait disturbance [None]
  - Cough [None]
  - Feeling abnormal [None]
